FAERS Safety Report 11102149 (Version 2)
Quarter: 2015Q2

REPORT INFORMATION
  Report Type: Report from Study
  Country: CO (occurrence: CO)
  Receive Date: 20150511
  Receipt Date: 20150526
  Transmission Date: 20150821
  Serious: Yes (Other)
  Sender: FDA-Public Use
  Company Number: CO-ROCHE-1575294

PATIENT
  Sex: Female
  Weight: 77 kg

DRUGS (1)
  1. XOLAIR [Suspect]
     Active Substance: OMALIZUMAB
     Indication: ASTHMA
     Dosage: 3 AMPOULES EVERY 15 DAYS (START: LONGER THAN 2 YEARS AGO)
     Route: 058

REACTIONS (1)
  - Chikungunya virus infection [Unknown]
